FAERS Safety Report 25523197 (Version 2)
Quarter: 2025Q3

REPORT INFORMATION
  Report Type: Report from Study
  Country: CR (occurrence: CR)
  Receive Date: 20250707
  Receipt Date: 20250810
  Transmission Date: 20251020
  Serious: Yes (Other)
  Sender: ALEXION PHARMACEUTICALS
  Company Number: CR-AstraZeneca-2024A176268

PATIENT
  Age: 45 Year
  Sex: Female

DRUGS (2)
  1. FASENRA [Suspect]
     Active Substance: BENRALIZUMAB
     Indication: Asthma
     Dosage: 30 MILLIGRAM, UNK, FREQUENCY: Q8WK
     Dates: start: 20240401
  2. FASENRA [Suspect]
     Active Substance: BENRALIZUMAB

REACTIONS (2)
  - Nasal disorder [Recovering/Resolving]
  - Lichen sclerosus [Not Recovered/Not Resolved]

NARRATIVE: CASE EVENT DATE: 20240730
